FAERS Safety Report 20302522 (Version 1)
Quarter: 2022Q1

REPORT INFORMATION
  Report Type: Spontaneous
  Country: NL (occurrence: NL)
  Receive Date: 20220106
  Receipt Date: 20220106
  Transmission Date: 20220423
  Serious: Yes (Death, Hospitalization, Other)
  Sender: FDA-Public Use
  Company Number: NL-ACTAVIS-2015-19740

PATIENT
  Age: 70 Year
  Sex: Female

DRUGS (7)
  1. VENLAFAXINE [Interacting]
     Active Substance: VENLAFAXINE HYDROCHLORIDE
     Indication: Affective disorder
     Dosage: 75 MILLIGRAM, TWO TIMES A DAY
     Route: 065
  2. VENLAFAXINE [Interacting]
     Active Substance: VENLAFAXINE HYDROCHLORIDE
     Dosage: 75 MILLIGRAM, 3 TIMES A DAY
     Route: 065
  3. METHYLENE BLUE [Interacting]
     Active Substance: METHYLENE BLUE
     Indication: Parathyroid gland operation
     Dosage: 9 MILLIGRAM/KILOGRAM
     Route: 042
  4. METHYLENE BLUE [Interacting]
     Active Substance: METHYLENE BLUE
     Dosage: 1 GRAM (TOTAL) (SHE RECEIVED METHYLTHIONINIUM CHLORIDE 1G (9 MG/KG)
     Route: 042
  5. ATRACURIUM [Concomitant]
     Active Substance: ATRACURIUM
     Indication: Anaesthesia
     Dosage: UNK
     Route: 065
  6. PROPOFOL [Concomitant]
     Active Substance: PROPOFOL
     Indication: Anaesthesia
     Dosage: UNK
     Route: 065
  7. SEVOFLURANE [Concomitant]
     Active Substance: SEVOFLURANE
     Indication: Maintenance of anaesthesia
     Dosage: UNK
     Route: 065

REACTIONS (3)
  - Serotonin syndrome [Fatal]
  - Drug interaction [Fatal]
  - Circulatory collapse [Not Recovered/Not Resolved]
